FAERS Safety Report 26186317 (Version 1)
Quarter: 2025Q4

REPORT INFORMATION
  Report Type: Spontaneous
  Country: US (occurrence: US)
  Receive Date: 20251222
  Receipt Date: 20251222
  Transmission Date: 20260117
  Serious: Yes (Other)
  Sender: MYLAN
  Company Number: US-MYLANLABS-2025M1108081

PATIENT
  Age: 66 Year
  Sex: Female

DRUGS (28)
  1. PREDNISONE [Suspect]
     Active Substance: PREDNISONE
     Indication: B-cell small lymphocytic lymphoma
     Dosage: UNK UNK, CYCLE, R-CHOP REGIMEN FOR SIX CYCLES
  2. PREDNISONE [Suspect]
     Active Substance: PREDNISONE
     Dosage: UNK UNK, CYCLE, R-CHOP REGIMEN FOR SIX CYCLES
     Route: 065
  3. PREDNISONE [Suspect]
     Active Substance: PREDNISONE
     Dosage: UNK UNK, CYCLE, R-CHOP REGIMEN FOR SIX CYCLES
     Route: 065
  4. PREDNISONE [Suspect]
     Active Substance: PREDNISONE
     Dosage: UNK UNK, CYCLE, R-CHOP REGIMEN FOR SIX CYCLES
  5. RITUXIMAB [Suspect]
     Active Substance: RITUXIMAB
     Indication: B-cell small lymphocytic lymphoma
     Dosage: UNK, CYCLE, R-CHOP REGIMEN FOR SIX CYCLES
  6. RITUXIMAB [Suspect]
     Active Substance: RITUXIMAB
     Dosage: UNK, CYCLE, R-CHOP REGIMEN FOR SIX CYCLES
  7. RITUXIMAB [Suspect]
     Active Substance: RITUXIMAB
     Dosage: UNK, CYCLE, R-CHOP REGIMEN FOR SIX CYCLES
     Route: 065
  8. RITUXIMAB [Suspect]
     Active Substance: RITUXIMAB
     Dosage: UNK, CYCLE, R-CHOP REGIMEN FOR SIX CYCLES
     Route: 065
  9. RITUXIMAB [Suspect]
     Active Substance: RITUXIMAB
     Dosage: UNK, MAINTENANCE RITUXIMAB
  10. RITUXIMAB [Suspect]
     Active Substance: RITUXIMAB
     Dosage: UNK, MAINTENANCE RITUXIMAB
  11. RITUXIMAB [Suspect]
     Active Substance: RITUXIMAB
     Dosage: UNK, MAINTENANCE RITUXIMAB
     Route: 065
  12. RITUXIMAB [Suspect]
     Active Substance: RITUXIMAB
     Dosage: UNK, MAINTENANCE RITUXIMAB
     Route: 065
  13. RITUXIMAB [Suspect]
     Active Substance: RITUXIMAB
     Dosage: UNK
  14. RITUXIMAB [Suspect]
     Active Substance: RITUXIMAB
     Dosage: UNK
     Route: 065
  15. RITUXIMAB [Suspect]
     Active Substance: RITUXIMAB
     Dosage: UNK
  16. RITUXIMAB [Suspect]
     Active Substance: RITUXIMAB
     Dosage: UNK
     Route: 065
  17. CYCLOPHOSPHAMIDE [Suspect]
     Active Substance: CYCLOPHOSPHAMIDE
     Indication: B-cell small lymphocytic lymphoma
     Dosage: UNK, CYCLE, R-CHOP REGIMEN FOR SIX CYCLES
  18. CYCLOPHOSPHAMIDE [Suspect]
     Active Substance: CYCLOPHOSPHAMIDE
     Dosage: UNK, CYCLE, R-CHOP REGIMEN FOR SIX CYCLES
     Route: 065
  19. CYCLOPHOSPHAMIDE [Suspect]
     Active Substance: CYCLOPHOSPHAMIDE
     Dosage: UNK, CYCLE, R-CHOP REGIMEN FOR SIX CYCLES
     Route: 065
  20. CYCLOPHOSPHAMIDE [Suspect]
     Active Substance: CYCLOPHOSPHAMIDE
     Dosage: UNK, CYCLE, R-CHOP REGIMEN FOR SIX CYCLES
  21. EPIRUBICIN [Suspect]
     Active Substance: EPIRUBICIN
     Indication: B-cell small lymphocytic lymphoma
     Dosage: UNK, CYCLE, R-CHOP REGIMEN FOR SIX CYCLES
  22. EPIRUBICIN [Suspect]
     Active Substance: EPIRUBICIN
     Dosage: UNK, CYCLE, R-CHOP REGIMEN FOR SIX CYCLES
     Route: 065
  23. EPIRUBICIN [Suspect]
     Active Substance: EPIRUBICIN
     Dosage: UNK, CYCLE, R-CHOP REGIMEN FOR SIX CYCLES
     Route: 065
  24. EPIRUBICIN [Suspect]
     Active Substance: EPIRUBICIN
     Dosage: UNK, CYCLE, R-CHOP REGIMEN FOR SIX CYCLES
  25. ONCOVIN [Suspect]
     Active Substance: VINCRISTINE SULFATE
     Indication: B-cell small lymphocytic lymphoma
     Dosage: UNK, CYCLE, R-CHOP REGIMEN FOR SIX CYCLES
  26. ONCOVIN [Suspect]
     Active Substance: VINCRISTINE SULFATE
     Dosage: UNK, CYCLE, R-CHOP REGIMEN FOR SIX CYCLES
     Route: 065
  27. ONCOVIN [Suspect]
     Active Substance: VINCRISTINE SULFATE
     Dosage: UNK, CYCLE, R-CHOP REGIMEN FOR SIX CYCLES
     Route: 065
  28. ONCOVIN [Suspect]
     Active Substance: VINCRISTINE SULFATE
     Dosage: UNK, CYCLE, R-CHOP REGIMEN FOR SIX CYCLES

REACTIONS (2)
  - Disease progression [Unknown]
  - Drug ineffective [Unknown]
